FAERS Safety Report 24048211 (Version 1)
Quarter: 2024Q3

REPORT INFORMATION
  Report Type: Spontaneous
  Country: CN (occurrence: CN)
  Receive Date: 20240703
  Receipt Date: 20240703
  Transmission Date: 20241016
  Serious: Yes (Other)
  Sender: SANDOZ
  Company Number: CN-002147023-NVSC2024CN137163

PATIENT
  Age: 8 Year
  Sex: Male
  Weight: 26 kg

DRUGS (2)
  1. TOBRADEX [Suspect]
     Active Substance: DEXAMETHASONE\TOBRAMYCIN
     Indication: Conjunctivitis bacterial
     Dosage: 1 DRP (4 TIMES PER EVERY 11 DAYS) ROUTE OF ADMIN (FREE TEXT): LOCAL
     Route: 065
     Dates: start: 20240617, end: 20240627
  2. TOBRADEX [Suspect]
     Active Substance: DEXAMETHASONE\TOBRAMYCIN
     Indication: Conjunctivitis allergic

REACTIONS (6)
  - Ocular hypertension [Unknown]
  - Eye swelling [Recovering/Resolving]
  - Intraocular pressure increased [Recovering/Resolving]
  - Dizziness [Unknown]
  - Eye pain [Recovering/Resolving]
  - Glaucoma [Unknown]

NARRATIVE: CASE EVENT DATE: 20240624
